FAERS Safety Report 8556543-2 (Version None)
Quarter: 2012Q3

REPORT INFORMATION
  Report Type: 
  Country: None (occurrence: None)
  Receive Date: 20120801
  Receipt Date: 20120724
  Transmission Date: 20120928
  Serious: Yes (Hospitalization)
  Sender: FDA-Public Use
  Company Number: US-BAYER-2012-017449

PATIENT
  Age: 16 Year
  Sex: Female
  Weight: 101.59 kg

DRUGS (4)
  1. YAZ [Suspect]
     Indication: ACNE
     Dosage: UNK
     Dates: start: 20080101, end: 20080201
  2. ALLEGRA-D 12 HOUR [Concomitant]
  3. CELEXA [Concomitant]
     Indication: DEPRESSION
     Dosage: 40 MG / DAY
     Route: 048
     Dates: start: 20080211
  4. YAZ [Suspect]
     Indication: CONTRACEPTION

REACTIONS (2)
  - CHOLELITHIASIS [None]
  - PAIN [None]
